FAERS Safety Report 6398650-9 (Version None)
Quarter: 2009Q4

REPORT INFORMATION
  Report Type: 
  Country: None (occurrence: None)
  Receive Date: 20091013
  Receipt Date: 20090810
  Transmission Date: 20100525
  Serious: Yes (Hospitalization)
  Sender: FDA-Public Use
  Company Number: FR-PFIZER INC-2009247028

PATIENT
  Age: 72 Year
  Sex: Female

DRUGS (10)
  1. SOLU-MEDROL [Suspect]
     Indication: LYMPHOMA
     Dosage: UNK, (1ST COURSE)
     Route: 042
     Dates: start: 20090501
  2. SOLU-MEDROL [Suspect]
     Dosage: 250 MG, UNK, (2ND COURSE)
     Route: 042
     Dates: start: 20090605, end: 20090609
  3. ETOPOSIDE [Suspect]
     Indication: LYMPHOMA
     Dosage: UNK, (1ST COURSE)
     Route: 042
     Dates: start: 20090501
  4. ETOPOSIDE [Suspect]
     Dosage: 69.25 MG, UNK, (2ND COURSE)
     Route: 042
     Dates: start: 20090605, end: 20090609
  5. MABTHERA [Suspect]
     Indication: LYMPHOMA
     Dosage: UNK, (1ST COURSE)
     Route: 042
     Dates: start: 20090501
  6. MABTHERA [Suspect]
     Dosage: 375 MG/M2, UNK
     Route: 042
     Dates: start: 20090605, end: 20090609
  7. EMEND [Suspect]
     Indication: LYMPHOMA
     Dosage: 125 MG, UNK
     Route: 048
     Dates: start: 20090501
  8. EMEND [Suspect]
     Dosage: 125 MG, UNK, (2ND COURSE)
     Route: 048
     Dates: start: 20090605, end: 20090609
  9. CARBOPLATIN [Suspect]
     Indication: LYMPHOMA
     Dosage: UNK, (1ST COURSE)
     Route: 042
     Dates: start: 20090501
  10. CARBOPLATIN [Suspect]
     Dosage: 10 MG/ML, UNK, (2ND COURSE)
     Route: 042
     Dates: start: 20090605, end: 20090609

REACTIONS (1)
  - CYTOLYTIC HEPATITIS [None]
